FAERS Safety Report 7630023-0 (Version None)
Quarter: 2011Q3

REPORT INFORMATION
  Report Type: 
  Country: None (occurrence: None)
  Receive Date: 20110722
  Receipt Date: 20110715
  Transmission Date: 20111222
  Serious: Yes (Hospitalization, Other)
  Sender: FDA-Public Use
  Company Number: US-ALEXION-A201100438

PATIENT
  Sex: Male

DRUGS (15)
  1. CARAFATE [Concomitant]
     Dosage: 1 G, TID
     Route: 048
  2. SOLIRIS [Suspect]
     Indication: PAROXYSMAL NOCTURNAL HAEMOGLOBINURIA
     Dosage: 1200 MG, SINGLE
     Route: 042
     Dates: start: 20110301
  3. SOLIRIS [Suspect]
     Dosage: 600 MG, QW
     Route: 042
     Dates: start: 20110301
  4. REGLAN [Concomitant]
     Indication: GASTRIC HAEMORRHAGE
     Dosage: 1-2 TABS, QD PRN
     Route: 048
  5. TRAMADOL HCL [Concomitant]
     Dosage: UNK
  6. FERROUS SULFATE TAB [Concomitant]
     Indication: ANAEMIA
     Dosage: UNK, QOD
     Route: 042
  7. COUMADIN [Concomitant]
     Dosage: 6 MG, QD
     Route: 048
  8. LOPERAMIDE [Concomitant]
     Dosage: UNK
  9. ALLOPURINOL [Concomitant]
     Indication: POOR PERIPHERAL CIRCULATION
     Dosage: 100 MG, TID
     Route: 048
  10. FUROSEMIDE [Concomitant]
     Dosage: UNK
  11. FOLIC ACID [Concomitant]
     Dosage: UNK, QD
     Route: 048
  12. PROPRANOLOL [Concomitant]
     Indication: PORTAL HYPERTENSION
     Dosage: 10 MG, TID
     Route: 048
  13. SOLIRIS [Suspect]
     Dosage: 900 MG, UNK
     Route: 042
  14. ALDACTONE [Concomitant]
     Indication: BUDD-CHIARI SYNDROME
     Dosage: UNK
  15. VITAMIN E [Concomitant]
     Dosage: UNK, QD
     Route: 048

REACTIONS (24)
  - FEAR [None]
  - AMNESIA [None]
  - DIARRHOEA [None]
  - ABDOMINAL PAIN [None]
  - GAIT DISTURBANCE [None]
  - DECREASED APPETITE [None]
  - CONDITION AGGRAVATED [None]
  - HYPERHIDROSIS [None]
  - OEDEMA PERIPHERAL [None]
  - DYSARTHRIA [None]
  - ASTHENIA [None]
  - PAIN IN EXTREMITY [None]
  - HEPATIC LESION [None]
  - MENTAL IMPAIRMENT [None]
  - PAROXYSMAL NOCTURNAL HAEMOGLOBINURIA [None]
  - DIPLOPIA [None]
  - DIZZINESS [None]
  - STRESS [None]
  - TREMOR [None]
  - WEIGHT DECREASED [None]
  - FATIGUE [None]
  - PAIN [None]
  - SPEECH DISORDER [None]
  - ARTHROPATHY [None]
